FAERS Safety Report 20336708 (Version 1)
Quarter: 2022Q1

REPORT INFORMATION
  Report Type: Spontaneous
  Country: US (occurrence: None)
  Receive Date: 20220114
  Receipt Date: 20220114
  Transmission Date: 20220423
  Serious: Yes (Death)
  Sender: FDA-Public Use
  Company Number: None

PATIENT
  Age: 57 Year
  Sex: Female

DRUGS (8)
  1. MYCOPHENOLIC ACID [Suspect]
     Active Substance: MYCOPHENOLIC ACID
     Indication: Renal transplant
     Dosage: FREQUENCY : TWICE A DAY;?
     Route: 048
     Dates: end: 202109
  2. CYCLOSPORINE [Suspect]
     Active Substance: CYCLOSPORINE
     Indication: Renal transplant
     Dosage: FREQUENCY : TWICE A DAY;?
     Route: 048
     Dates: end: 202109
  3. MIDODRINE [Concomitant]
     Active Substance: MIDODRINE
  4. ELIQUIS [Concomitant]
     Active Substance: APIXABAN
  5. TAMSULOSIN [Concomitant]
     Active Substance: TAMSULOSIN
  6. SODIUM BICARBONATE [Concomitant]
     Active Substance: SODIUM BICARBONATE
  7. FUROSEMIDE [Suspect]
     Active Substance: FUROSEMIDE
  8. MUPIROCIN [Concomitant]
     Active Substance: MUPIROCIN

REACTIONS (1)
  - Cardiac disorder [None]

NARRATIVE: CASE EVENT DATE: 20211222
